FAERS Safety Report 4637762-4 (Version None)
Quarter: 2005Q2

REPORT INFORMATION
  Report Type: 
  Country: None (occurrence: None)
  Receive Date: 20050418
  Receipt Date: 20050406
  Transmission Date: 20051028
  Serious: Yes (Other)
  Sender: FDA-Public Use
  Company Number: US-MERCK-0504USA01370

PATIENT
  Sex: Male

DRUGS (15)
  1. VIOXX [Suspect]
     Indication: HANGOVER
     Route: 048
     Dates: start: 20030101, end: 20030101
  2. VIOXX [Suspect]
     Route: 048
     Dates: start: 20030101, end: 20040201
  3. VIOXX [Suspect]
     Indication: ANAL DISCOMFORT
     Route: 048
     Dates: start: 20030101, end: 20030101
  4. VIOXX [Suspect]
     Route: 048
     Dates: start: 20030101, end: 20040201
  5. HYDROCHLOROTHIAZIDE TABLETS (USP 23) [Concomitant]
     Route: 065
  6. ZOLOFT [Concomitant]
     Route: 065
  7. OXYCONTIN [Concomitant]
     Route: 065
  8. PERCOCET [Concomitant]
     Route: 065
  9. BENADRYL [Concomitant]
     Route: 065
  10. CLARITIN [Concomitant]
     Route: 065
  11. FLONASE [Concomitant]
     Route: 065
  12. AFRIN [Concomitant]
     Route: 065
  13. PEG-INTRON [Concomitant]
     Route: 065
  14. REBETOL [Concomitant]
     Route: 065
  15. [THERAPY UNSPECIFIED] [Concomitant]
     Route: 065

REACTIONS (6)
  - BLOOD PRESSURE INCREASED [None]
  - HEART RATE ABNORMAL [None]
  - HEART RATE INCREASED [None]
  - LIBIDO DECREASED [None]
  - PALPITATIONS [None]
  - RESPIRATORY ARREST [None]
